FAERS Safety Report 7318726-9 (Version None)
Quarter: 2011Q1

REPORT INFORMATION
  Report Type: 
  Country: None (occurrence: None)
  Receive Date: 20110228
  Receipt Date: 20100114
  Transmission Date: 20110831
  Serious: No
  Sender: FDA-Public Use
  Company Number: A0839799A

PATIENT
  Age: 72 Year
  Sex: Female

DRUGS (4)
  1. IMITREX [Suspect]
     Indication: MIGRAINE
     Dosage: 6MG AS DIRECTED
     Route: 058
  2. MAXALT [Suspect]
     Indication: MIGRAINE
     Dosage: 10MG SINGLE DOSE
     Route: 048
  3. ANTI-CHOLESTEROL MEDICATION [Concomitant]
  4. IMITREX [Suspect]
     Indication: MIGRAINE
     Route: 058

REACTIONS (1)
  - DRUG INEFFECTIVE [None]
